FAERS Safety Report 5397656-6 (Version None)
Quarter: 2007Q3

REPORT INFORMATION
  Report Type: 
  Country: None (occurrence: None)
  Receive Date: 20070723
  Receipt Date: 20070723
  Transmission Date: 20080115
  Serious: No
  Sender: FDA-Public Use
  Company Number: None

PATIENT
  Age: 24 Year
  Sex: Male
  Weight: 81.1939 kg

DRUGS (1)
  1. VALPROIC ACID [Suspect]
     Dosage: 1000 MG  DAILY  PO
     Route: 048

REACTIONS (1)
  - AMMONIA INCREASED [None]
